FAERS Safety Report 5278291-7 (Version None)
Quarter: 2007Q1

REPORT INFORMATION
  Report Type: 
  Country: None (occurrence: None)
  Receive Date: 20070328
  Receipt Date: 20070315
  Transmission Date: 20070707
  Serious: Yes (Other)
  Sender: FDA-Public Use
  Company Number: US-BAYER-200710798BCC

PATIENT
  Sex: Female

DRUGS (1)
  1. ALEVE COLD AND SINUS [Suspect]
     Indication: DRUG USE FOR UNKNOWN INDICATION
     Dosage: UNIT DOSE: 220 MG
     Route: 048

REACTIONS (2)
  - FOETAL HEART RATE ABNORMAL [None]
  - INTRA-UTERINE DEATH [None]
